FAERS Safety Report 7176460-2 (Version None)
Quarter: 2010Q4

REPORT INFORMATION
  Report Type: 
  Country: None (occurrence: None)
  Receive Date: 20101215
  Receipt Date: 20101215
  Transmission Date: 20110411
  Serious: Yes (Other)
  Sender: FDA-Public Use
  Company Number: None

PATIENT
  Sex: Male
  Weight: 19.0511 kg

DRUGS (1)
  1. CATAPRES-TTS-2 [Suspect]
     Indication: HYPERTENSION

REACTIONS (4)
  - APPLICATION SITE RASH [None]
  - APPLICATION SITE VESICLES [None]
  - PRODUCT SUBSTITUTION ISSUE [None]
  - RASH ERYTHEMATOUS [None]
